FAERS Safety Report 7797188-1 (Version None)
Quarter: 2011Q4

REPORT INFORMATION
  Report Type: 
  Country: None (occurrence: None)
  Receive Date: 20111005
  Receipt Date: 20110929
  Transmission Date: 20120403
  Serious: Yes (Death)
  Sender: FDA-Public Use
  Company Number: PHHY2011PA86530

PATIENT
  Age: 69 Year
  Sex: Male

DRUGS (1)
  1. DIOVAN HCT [Suspect]
     Dosage: 160 MG VALS AND 25 MG HYDRO
     Dates: end: 20101001

REACTIONS (1)
  - DEATH [None]
